FAERS Safety Report 8443822-2 (Version None)
Quarter: 2012Q2

REPORT INFORMATION
  Report Type: 
  Country: None (occurrence: None)
  Receive Date: 20120323
  Receipt Date: 20110902
  Transmission Date: 20120825
  Serious: Yes (Hospitalization)
  Sender: FDA-Public Use
  Company Number: 163-21880-11061665

PATIENT
  Age: 79 Year
  Sex: Female
  Weight: 79.3795 kg

DRUGS (1)
  1. REVLIMID [Suspect]
     Indication: MULTIPLE MYELOMA
     Dosage: 5 MG, DAILY FOR 14 DAYS, PO
     Route: 048
     Dates: start: 20110404

REACTIONS (4)
  - CONSTIPATION [None]
  - CHEST DISCOMFORT [None]
  - MYALGIA [None]
  - OEDEMA PERIPHERAL [None]
